FAERS Safety Report 6169238-X (Version None)
Quarter: 2009Q2

REPORT INFORMATION
  Report Type: 
  Country: None (occurrence: None)
  Receive Date: 20090424
  Receipt Date: 20090414
  Transmission Date: 20091009
  Serious: Yes (Other)
  Sender: FDA-Public Use
  Company Number: 2009010022

PATIENT
  Age: 76 Year
  Sex: Male
  Weight: 84.8226 kg

DRUGS (6)
  1. ASTELIN [Suspect]
     Indication: OTITIS MEDIA
     Dosage: 1096 MCG (548 MCG, 2 IN 1 D), IN
     Dates: start: 20080501, end: 20090106
  2. ASTELIN [Suspect]
     Indication: RHINITIS ALLERGIC
     Dosage: 1096 MCG (548 MCG, 2 IN 1 D), IN
     Dates: start: 20080501, end: 20090106
  3. NORVASC [Concomitant]
  4. HYZAAR [Concomitant]
  5. ASPIRIN [Concomitant]
  6. HYTRIN [Concomitant]

REACTIONS (3)
  - CONTUSION [None]
  - ECCHYMOSIS [None]
  - MUSCLE SPASMS [None]
